FAERS Safety Report 7139237-X (Version None)
Quarter: 2010Q4

REPORT INFORMATION
  Report Type: 
  Country: None (occurrence: None)
  Receive Date: 20101202
  Receipt Date: 20101202
  Transmission Date: 20110411
  Serious: No
  Sender: FDA-Public Use
  Company Number: None

PATIENT
  Age: 57 Year
  Sex: Female
  Weight: 56.246 kg

DRUGS (1)
  1. PROPOXYPHENE HCL AND ACETAMINOPHEN [Suspect]
     Indication: SPINAL OSTEOARTHRITIS
     Dosage: 1 EVERY 6 HOURS PO
     Route: 048
     Dates: start: 19900101, end: 20101201

REACTIONS (3)
  - CHEST PAIN [None]
  - DIZZINESS [None]
  - MIGRAINE [None]
